FAERS Safety Report 8056229-7 (Version None)
Quarter: 2012Q1

REPORT INFORMATION
  Report Type: 
  Country: None (occurrence: None)
  Receive Date: 20120119
  Receipt Date: 20120116
  Transmission Date: 20120608
  Serious: Yes (Death, Hospitalization, Other)
  Sender: FDA-Public Use
  Company Number: PHHY2012FR003811

PATIENT
  Age: 50 Year
  Sex: Female

DRUGS (1)
  1. CARBOPLATIN [Suspect]
     Indication: MALIGNANT PERITONEAL NEOPLASM
     Dosage: 360 MG/M2, UNK

REACTIONS (17)
  - DYSPNOEA [None]
  - ASTHENIA [None]
  - LACTIC ACIDOSIS [None]
  - FLUID RETENTION [None]
  - HEPATIC FAILURE [None]
  - NEUROTOXICITY [None]
  - CONFUSIONAL STATE [None]
  - RESPIRATORY DISORDER [None]
  - ASCITES [None]
  - TACHYCARDIA [None]
  - RENAL FAILURE ACUTE [None]
  - ABDOMINAL PAIN [None]
  - MITOCHONDRIAL CYTOPATHY [None]
  - NEOPLASM MALIGNANT [None]
  - HYPOTHERMIA [None]
  - TACHYPNOEA [None]
  - HYPOTENSION [None]
